FAERS Safety Report 5691878-2 (Version None)
Quarter: 2008Q2

REPORT INFORMATION
  Report Type: 
  Country: None (occurrence: None)
  Receive Date: 20080402
  Receipt Date: 20080402
  Transmission Date: 20081010
  Serious: Yes (Other)
  Sender: FDA-Public Use
  Company Number: A0718885A

PATIENT
  Age: 49 Year
  Sex: Female
  Weight: 109 kg

DRUGS (2)
  1. ALLI [Suspect]
  2. LAXATIVE [Concomitant]

REACTIONS (2)
  - ANAL HAEMORRHAGE [None]
  - RECTAL HAEMORRHAGE [None]
